FAERS Safety Report 12760275 (Version 2)
Quarter: 2016Q4

REPORT INFORMATION
  Report Type: Report from Study
  Country: DE (occurrence: DE)
  Receive Date: 20160919
  Receipt Date: 20161101
  Transmission Date: 20170207
  Serious: Yes (Hospitalization, Other)
  Sender: FDA-Public Use
  Company Number: DE-BAYER-2016-161965

PATIENT
  Age: 35 Year
  Sex: Female

DRUGS (1)
  1. MIRENA [Suspect]
     Active Substance: LEVONORGESTREL
     Indication: CONTRACEPTION
     Dosage: 20 MCG/24HR, CONT
     Route: 015
     Dates: start: 20151009, end: 20160524

REACTIONS (7)
  - Pregnancy with contraceptive device [None]
  - Infection [None]
  - Anaemia of pregnancy [None]
  - Abdominal pain [None]
  - Medication error [None]
  - Pyrexia [None]
  - C-reactive protein increased [None]

NARRATIVE: CASE EVENT DATE: 20151009
